FAERS Safety Report 13092710 (Version 3)
Quarter: 2017Q1

REPORT INFORMATION
  Report Type: Spontaneous
  Country: KZ (occurrence: KZ)
  Receive Date: 20170106
  Receipt Date: 20170313
  Transmission Date: 20170428
  Serious: Yes (Hospitalization)
  Sender: FDA-Public Use
  Company Number: KZ-JNJFOC-20161226723

PATIENT
  Age: 68 Year
  Sex: Female
  Weight: 38 kg

DRUGS (6)
  1. BEDAQUILINE [Suspect]
     Active Substance: BEDAQUILINE
     Indication: TUBERCULOSIS
     Dosage: [200] MG ORALLY
     Route: 048
     Dates: start: 20160217, end: 20161027
  2. CLOFAZIMINE [Suspect]
     Active Substance: CLOFAZIMINE
     Indication: TUBERCULOSIS
     Dosage: [100] MG ORALLY
     Route: 048
     Dates: start: 20160217, end: 20161027
  3. CYCLOSERINE. [Suspect]
     Active Substance: CYCLOSERINE
     Indication: TUBERCULOSIS
     Route: 048
     Dates: start: 20160217, end: 20161027
  4. CAPREOMYCIN [Suspect]
     Active Substance: CAPREOMYCIN
     Indication: TUBERCULOSIS
     Route: 048
     Dates: start: 20160217, end: 20161027
  5. LEVOFLOXACIN. [Suspect]
     Active Substance: LEVOFLOXACIN
     Indication: TUBERCULOSIS
     Route: 048
     Dates: start: 20160217, end: 20161027
  6. LINEZOLID. [Suspect]
     Active Substance: LINEZOLID
     Indication: TUBERCULOSIS
     Dosage: [300] MG  ORALLY
     Route: 048
     Dates: start: 20160217, end: 20161027

REACTIONS (4)
  - Electrocardiogram QT prolonged [Recovering/Resolving]
  - Treatment failure [Unknown]
  - Pancytopenia [Recovering/Resolving]
  - Cardiopulmonary failure [Not Recovered/Not Resolved]

NARRATIVE: CASE EVENT DATE: 20161026
